FAERS Safety Report 6664084-2 (Version None)
Quarter: 2010Q2

REPORT INFORMATION
  Report Type: 
  Country: None (occurrence: None)
  Receive Date: 20100401
  Receipt Date: 20100329
  Transmission Date: 20101027
  Serious: Yes (Hospitalization)
  Sender: FDA-Public Use
  Company Number: A0852767A

PATIENT
  Age: 40 Year
  Sex: Female

DRUGS (1)
  1. ROSIGLITAZONE [Suspect]
     Indication: DIABETES MELLITUS
     Route: 048

REACTIONS (4)
  - CARDIAC DISORDER [None]
  - CARDIOVASCULAR DISORDER [None]
  - CONDITION AGGRAVATED [None]
  - DEPRESSION [None]
